FAERS Safety Report 9149114 (Version 1)
Quarter: 2013Q1

REPORT INFORMATION
  Report Type: Spontaneous
  Country: US (occurrence: None)
  Receive Date: 20130228
  Receipt Date: 20130228
  Transmission Date: 20140127
  Serious: No
  Sender: FDA-Public Use
  Company Number: None

PATIENT
  Sex: Male
  Weight: 101.15 kg

DRUGS (2)
  1. AMBIEN [Suspect]
     Indication: SLEEP DISORDER
     Dosage: AMBIEN 10MG QHS PO
     Route: 048
     Dates: start: 200702
  2. AMBIEN [Suspect]
     Indication: INSOMNIA
     Dosage: AMBIEN 10MG QHS PO
     Route: 048
     Dates: start: 200702

REACTIONS (1)
  - Drug ineffective [None]
